FAERS Safety Report 16653524 (Version 4)
Quarter: 2021Q2

REPORT INFORMATION
  Report Type: Spontaneous
  Country: US (occurrence: US)
  Receive Date: 20190731
  Receipt Date: 20210625
  Transmission Date: 20210716
  Serious: Yes (Other)
  Sender: FDA-Public Use
  Company Number: US-GILEAD-2019-0420287

PATIENT
  Age: 60 Year
  Sex: Male
  Weight: 72.56 kg

DRUGS (18)
  1. SUSTIVA [Concomitant]
     Active Substance: EFAVIRENZ
  2. DESCOVY [Concomitant]
     Active Substance: EMTRICITABINE\TENOFOVIR ALAFENAMIDE FUMARATE
  3. PREZISTA [Concomitant]
     Active Substance: DARUNAVIR ETHANOLATE
  4. STRIBILD [Suspect]
     Active Substance: COBICISTAT\ELVITEGRAVIR\EMTRICITABINE\TENOFOVIR DISOPROXIL FUMARATE
     Indication: HIV INFECTION
     Dosage: UNK
     Route: 048
     Dates: start: 201511, end: 201710
  5. AMPICILLIN [Concomitant]
     Active Substance: AMPICILLIN
  6. LASIX [Concomitant]
     Active Substance: FUROSEMIDE
  7. COMBIVIR [Concomitant]
     Active Substance: LAMIVUDINE\ZIDOVUDINE
  8. GENVOYA [Concomitant]
     Active Substance: COBICISTAT\ELVITEGRAVIR\EMTRICITABINE\TENOFOVIR ALAFENAMIDE FUMARATE
  9. PENICILLIN NOS [Concomitant]
     Active Substance: PENICILLIN
  10. CRESTOR [Concomitant]
     Active Substance: ROSUVASTATIN CALCIUM
  11. HEPARIN [Concomitant]
     Active Substance: HEPARIN SODIUM
  12. ASPIRIN [ACETYLSALICYLIC ACID] [Concomitant]
     Active Substance: ASPIRIN
  13. NORVIR [Concomitant]
     Active Substance: RITONAVIR
  14. TRUVADA [Suspect]
     Active Substance: EMTRICITABINE\TENOFOVIR DISOPROXIL FUMARATE
     Indication: HIV INFECTION
     Dosage: UNK
     Route: 048
     Dates: start: 200812, end: 201511
  15. ACETAMINOPHEN. [Concomitant]
     Active Substance: ACETAMINOPHEN
  16. TIVICAY [Concomitant]
     Active Substance: DOLUTEGRAVIR SODIUM
  17. TRUVADA [Suspect]
     Active Substance: EMTRICITABINE\TENOFOVIR DISOPROXIL FUMARATE
     Dosage: UNK
     Route: 065
     Dates: start: 20081203, end: 201511
  18. DILANTIN [Concomitant]
     Active Substance: PHENYTOIN

REACTIONS (15)
  - Anxiety [Not Recovered/Not Resolved]
  - Depression [Not Recovered/Not Resolved]
  - Pain [Not Recovered/Not Resolved]
  - Kidney fibrosis [Unknown]
  - Economic problem [Unknown]
  - Focal segmental glomerulosclerosis [Unknown]
  - Renal arteriosclerosis [Unknown]
  - Anhedonia [Unknown]
  - Chronic kidney disease [Not Recovered/Not Resolved]
  - Renal failure [Not Recovered/Not Resolved]
  - End stage renal disease [Not Recovered/Not Resolved]
  - Diabetic nephropathy [Unknown]
  - Emotional distress [Not Recovered/Not Resolved]
  - Intercapillary glomerulosclerosis [Unknown]
  - Glomerulosclerosis [Unknown]

NARRATIVE: CASE EVENT DATE: 201611
